FAERS Safety Report 11589808 (Version 4)
Quarter: 2015Q4

REPORT INFORMATION
  Report Type: Report from Study
  Country: US (occurrence: None)
  Receive Date: 20151002
  Receipt Date: 20151103
  Transmission Date: 20160304
  Serious: No
  Sender: FDA-Public Use
  Company Number: US-MDT-ADR-2015-01889

PATIENT
  Age: 58 Year
  Sex: Male

DRUGS (2)
  1. BACLOFEN INTRATHECAL 250 MCG/ML [Suspect]
     Active Substance: BACLOFEN
     Indication: PAIN
     Dosage: 33.93 MCG/DAY
  2. MORPHINE INTRATHECAL 10 MG/ML [Suspect]
     Active Substance: MORPHINE
     Indication: PAIN
     Dosage: 1.357 MG/DAY

REACTIONS (4)
  - Muscle spasticity [None]
  - Muscle spasms [None]
  - Muscle tightness [None]
  - Pain [None]
